FAERS Safety Report 7409709-9 (Version None)
Quarter: 2011Q2

REPORT INFORMATION
  Report Type: 
  Country: None (occurrence: None)
  Receive Date: 20110412
  Receipt Date: 20110405
  Transmission Date: 20111010
  Serious: Yes (Other)
  Sender: FDA-Public Use
  Company Number: US-JNJFOC-20100203124

PATIENT
  Sex: Female
  Weight: 98.88 kg

DRUGS (8)
  1. EXTRA STRENGTH TYLENOL [Suspect]
     Indication: ANALGESIC THERAPY
     Route: 048
  2. EXTRA STRENGTH TYLENOL [Suspect]
     Indication: ABDOMINAL PAIN UPPER
     Route: 048
  3. EXTRA STRENGTH TYLENOL [Suspect]
     Route: 048
  4. EXTRA STRENGTH TYLENOL [Suspect]
     Route: 048
  5. EXTRA STRENGTH TYLENOL [Suspect]
     Route: 048
  6. VIVELLE [Concomitant]
     Indication: BLOOD OESTROGEN
     Route: 062
  7. EXTRA STRENGTH TYLENOL [Suspect]
     Route: 048
  8. SYNTHROID [Concomitant]
     Indication: HYPOTHYROIDISM
     Route: 065

REACTIONS (6)
  - PRODUCT QUALITY ISSUE [None]
  - VOMITING [None]
  - ANAEMIA [None]
  - ILEAL STENOSIS [None]
  - COLITIS [None]
  - CROHN'S DISEASE [None]
